FAERS Safety Report 5175150-5 (Version None)
Quarter: 2006Q4

REPORT INFORMATION
  Report Type: 
  Country: None (occurrence: None)
  Receive Date: 20061206
  Receipt Date: 20061123
  Transmission Date: 20070319
  Serious: Yes (Other)
  Sender: FDA-Public Use
  Company Number: SP-2006-003356

PATIENT
  Age: 77 Year
  Sex: Female
  Weight: 75 kg

DRUGS (1)
  1. OLMESARTAN MEDOXOMIL + HCTZ [Suspect]
     Indication: HYPERTENSION
     Dosage: 20MG/12.5MG
     Dates: start: 20060907, end: 20060908

REACTIONS (1)
  - PALPITATIONS [None]
